FAERS Safety Report 25919133 (Version 1)
Quarter: 2025Q4

REPORT INFORMATION
  Report Type: Spontaneous
  Country: US (occurrence: US)
  Receive Date: 20251014
  Receipt Date: 20251014
  Transmission Date: 20260118
  Serious: Yes (Life-Threatening, Other)
  Sender: NOVARTIS
  Company Number: US-002147023-NVSC2025US158599

PATIENT
  Age: 62 Year
  Sex: Female

DRUGS (1)
  1. ELTROMBOPAG [Suspect]
     Active Substance: ELTROMBOPAG
     Indication: Immune thrombocytopenia
     Dosage: UNK
     Route: 048

REACTIONS (2)
  - Hepatotoxicity [Recovered/Resolved]
  - Transient ischaemic attack [Recovered/Resolved]
